FAERS Safety Report 23596108 (Version 1)
Quarter: 2024Q1

REPORT INFORMATION
  Report Type: Spontaneous
  Country: US (occurrence: US)
  Receive Date: 20240305
  Receipt Date: 20240305
  Transmission Date: 20240410
  Serious: Yes (Other)
  Sender: FDA-Public Use
  Company Number: US-PFIZER INC-PV202400028862

PATIENT
  Age: 74 Year
  Sex: Male

DRUGS (3)
  1. ESTROGENS, CONJUGATED [Suspect]
     Active Substance: ESTROGENS, CONJUGATED
     Indication: Hormone therapy
     Dosage: UNK
     Route: 048
  2. ESTROGENS, CONJUGATED [Suspect]
     Active Substance: ESTROGENS, CONJUGATED
     Indication: Hormone therapy
     Dosage: UNK (INTERMITTENT, APPROXIMATELY 40 YEARS AGO)
     Route: 030
  3. FINASTERIDE [Concomitant]
     Active Substance: FINASTERIDE
     Dosage: 5 MG, DAILY (APPROXIMATELY 2 YEARS AGO)
     Route: 048

REACTIONS (3)
  - Breast cancer [Unknown]
  - Off label use [Unknown]
  - Product use issue [Unknown]
